FAERS Safety Report 10510047 (Version 4)
Quarter: 2018Q2

REPORT INFORMATION
  Report Type: Report from Study
  Country: BR (occurrence: BR)
  Receive Date: 20141010
  Receipt Date: 20180420
  Transmission Date: 20180711
  Serious: Yes (Hospitalization, Other)
  Sender: FDA-Public Use
  Company Number: BR-ROCHE-1298546

PATIENT
  Age: 52 Year
  Sex: Female
  Weight: 54 kg

DRUGS (14)
  1. DIAMICRON [Concomitant]
     Active Substance: GLICLAZIDE
     Indication: DIABETES MELLITUS
     Route: 065
  2. METFORMIN [Concomitant]
     Active Substance: METFORMIN HYDROCHLORIDE
     Indication: DIABETES MELLITUS
     Dosage: 1 TABLET AT NIGHT
     Route: 065
  3. TRILAX (BRAZIL) [Concomitant]
     Indication: PAIN
     Route: 065
     Dates: start: 2010
  4. TORSILAX [Concomitant]
     Active Substance: ACETAMINOPHEN\CAFFEINE\CARISOPRODOL\DICLOFENAC
     Indication: PAIN
     Route: 065
     Dates: start: 2010
  5. ALDACTONE (BRAZIL) [Concomitant]
     Indication: ERYTHEMA
  6. TRIMOX [Concomitant]
     Active Substance: AMOXICILLIN
  7. DEFLAZACORT [Concomitant]
     Active Substance: DEFLAZACORT
     Indication: RHEUMATOID ARTHRITIS
     Route: 065
     Dates: start: 2010
  8. ACTEMRA [Suspect]
     Active Substance: TOCILIZUMAB
     Indication: RHEUMATOID ARTHRITIS
     Dosage: 6 BOTTLES OF 80 MG?LATEST INFUSION ON 01/DEC/2013
     Route: 042
     Dates: start: 20131028, end: 201709
  9. DIAMICRON [Concomitant]
     Active Substance: GLICLAZIDE
     Indication: DIABETES MELLITUS
  10. AAS [Concomitant]
     Active Substance: ASPIRIN
     Dosage: AT NIGHT
     Route: 065
  11. ALDACTONE (BRAZIL) [Concomitant]
     Indication: PERIPHERAL SWELLING
     Dosage: DURING THE DAY
     Route: 065
  12. VALSARTAN. [Concomitant]
     Active Substance: VALSARTAN
     Indication: HYPERTENSION
     Dosage: DURING THE MORNING
     Route: 065
  13. CLOPIDOGREL [Concomitant]
     Active Substance: CLOPIDOGREL BISULFATE
  14. ROSUVASTATIN. [Concomitant]
     Active Substance: ROSUVASTATIN

REACTIONS (17)
  - Bone erosion [Not Recovered/Not Resolved]
  - Diarrhoea [Unknown]
  - Headache [Not Recovered/Not Resolved]
  - Nausea [Not Recovered/Not Resolved]
  - Pain in extremity [Not Recovered/Not Resolved]
  - Immune system disorder [Unknown]
  - Pneumonia [Unknown]
  - Rheumatoid arthritis [Not Recovered/Not Resolved]
  - Uterine injury [Unknown]
  - Calculus bladder [Unknown]
  - Peripheral swelling [Not Recovered/Not Resolved]
  - Blister [Unknown]
  - Infarction [Unknown]
  - Fall [Unknown]
  - Peripheral swelling [Not Recovered/Not Resolved]
  - Erythema [Not Recovered/Not Resolved]
  - Influenza [Unknown]

NARRATIVE: CASE EVENT DATE: 20150818
